FAERS Safety Report 6244785-0 (Version None)
Quarter: 2009Q2

REPORT INFORMATION
  Report Type: 
  Country: None (occurrence: None)
  Receive Date: 20090623
  Receipt Date: 20090623
  Transmission Date: 20091009
  Serious: Yes (Other)
  Sender: FDA-Public Use
  Company Number: None

PATIENT
  Age: 45 Year
  Sex: Male
  Weight: 80.7403 kg

DRUGS (2)
  1. LUNESTA [Suspect]
     Indication: SLEEP DISORDER
     Dosage: 3 MG AT BEDTIME PO
     Route: 048
     Dates: start: 20051005, end: 20051105
  2. ZOLPIDEM [Suspect]
     Indication: SLEEP DISORDER
     Dosage: ZOLPIDEM AT BED TIME PO
     Route: 048
     Dates: start: 20071107, end: 20071207

REACTIONS (3)
  - DRUG INEFFECTIVE [None]
  - DYSGEUSIA [None]
  - GASTROINTESTINAL DISORDER [None]
